FAERS Safety Report 21079060 (Version 1)
Quarter: 2022Q3

REPORT INFORMATION
  Report Type: Report from Study
  Country: US (occurrence: US)
  Receive Date: 20220713
  Receipt Date: 20220713
  Transmission Date: 20221027
  Serious: Yes (Hospitalization)
  Sender: FDA-Public Use
  Company Number: US-JNJFOC-20220708457

PATIENT
  Age: 68 Year
  Sex: Male

DRUGS (2)
  1. ERDAFITINIB [Suspect]
     Active Substance: ERDAFITINIB
     Indication: Product used for unknown indication
     Route: 065
  2. ERDAFITINIB [Suspect]
     Active Substance: ERDAFITINIB
     Route: 065
     Dates: start: 202203

REACTIONS (5)
  - Vomiting [Unknown]
  - Nausea [Unknown]
  - Diarrhoea [Unknown]
  - Dehydration [Unknown]
  - Toxicity to various agents [Unknown]
